FAERS Safety Report 17142846 (Version 1)
Quarter: 2019Q4

REPORT INFORMATION
  Report Type: Report from Study
  Country: GB (occurrence: GB)
  Receive Date: 20191211
  Receipt Date: 20191211
  Transmission Date: 20200122
  Serious: Yes (Other)
  Sender: FDA-Public Use
  Company Number: NVSC2019GB062450

PATIENT
  Sex: Male

DRUGS (1)
  1. HYRIMOZ [Suspect]
     Active Substance: ADALIMUMAB-ADAZ
     Indication: ANKYLOSING SPONDYLITIS
     Dosage: 0.8 ML, FORTNIGHTLY
     Route: 065

REACTIONS (5)
  - Tendon pain [Unknown]
  - Injection site pain [Unknown]
  - Pain in extremity [Unknown]
  - Bone pain [Unknown]
  - Uveitis [Unknown]
